FAERS Safety Report 8768525 (Version 1)
Quarter: 2012Q4

REPORT INFORMATION
  Report Type: 
  Country: US (occurrence: US)
  Receive Date: 20120905
  Receipt Date: 20120905
  Transmission Date: 20130627
  Serious: Yes (Congenital Anomaly, Other)
  Sender: FDA-Public Use
  Company Number: US-ROCHE-69657

PATIENT

DRUGS (3)
  1. ACCUTANE [Suspect]
     Indication: ACNE CYSTIC
     Route: 065
  2. ACCUTANE [Suspect]
     Route: 065
     Dates: start: 19960406, end: 19960606
  3. ACCUTANE [Suspect]
     Route: 065

REACTIONS (5)
  - Cytogenetic abnormality [Unknown]
  - Congenital hand malformation [Unknown]
  - Syndactyly [Unknown]
  - Foetal growth restriction [Unknown]
  - Human chorionic gonadotropin negative [Unknown]
